FAERS Safety Report 13145335 (Version 1)
Quarter: 2017Q1

REPORT INFORMATION
  Report Type: Spontaneous
  Country: PE (occurrence: PE)
  Receive Date: 20170124
  Receipt Date: 20170124
  Transmission Date: 20170428
  Serious: Yes (Other)
  Sender: FDA-Public Use
  Company Number: PE-PFIZER INC-2016273935

PATIENT
  Age: 75 Year
  Sex: Female

DRUGS (1)
  1. XALATAN [Suspect]
     Active Substance: LATANOPROST
     Dosage: 1 GTT (ON EACH EYE), DAILY
     Route: 047

REACTIONS (4)
  - Glaucoma [Recovered/Resolved]
  - Drug ineffective [Recovered/Resolved]
  - Hypertension [Unknown]
  - Cataract [Unknown]
